FAERS Safety Report 15405656 (Version 1)
Quarter: 2018Q3

REPORT INFORMATION
  Report Type: Spontaneous
  Country: US (occurrence: US)
  Receive Date: 20180920
  Receipt Date: 20180920
  Transmission Date: 20181010
  Serious: Yes (Death, Hospitalization, Other)
  Sender: FDA-Public Use
  Company Number: US-ZYDUS-026932

PATIENT
  Age: 67 Year
  Sex: Male

DRUGS (1)
  1. METFORMIN [Suspect]
     Active Substance: METFORMIN HYDROCHLORIDE
     Indication: PRODUCT USED FOR UNKNOWN INDICATION
     Route: 065

REACTIONS (13)
  - Gastrointestinal haemorrhage [Unknown]
  - Hypotension [Unknown]
  - Depressed level of consciousness [Unknown]
  - Metabolic acidosis [Unknown]
  - Death [Fatal]
  - Anion gap abnormal [Unknown]
  - Acute lung injury [Unknown]
  - Coagulopathy [Unknown]
  - Acute kidney injury [Unknown]
  - Respiratory depression [Unknown]
  - Toxicity to various agents [Unknown]
  - Electrocardiogram QT prolonged [Unknown]
  - Leukocytosis [Unknown]
